FAERS Safety Report 7652158-9 (Version None)
Quarter: 2011Q3

REPORT INFORMATION
  Report Type: 
  Country: None (occurrence: None)
  Receive Date: 20110803
  Receipt Date: 20110726
  Transmission Date: 20111222
  Serious: Yes (Other)
  Sender: FDA-Public Use
  Company Number: US-JNJFOC-20110712219

PATIENT
  Sex: Female

DRUGS (3)
  1. SEROQUEL [Concomitant]
     Route: 048
     Dates: end: 20110726
  2. ABILIFY [Concomitant]
     Route: 048
     Dates: start: 20110201
  3. INVEGA [Suspect]
     Indication: AFFECTIVE DISORDER
     Route: 048
     Dates: start: 20110201, end: 20110705

REACTIONS (2)
  - SPASMODIC DYSPHONIA [None]
  - DYSPHONIA [None]
